FAERS Safety Report 8838559 (Version 12)
Quarter: 2014Q2

REPORT INFORMATION
  Report Type: Spontaneous
  Country: US (occurrence: US)
  Receive Date: 20121012
  Receipt Date: 20140605
  Transmission Date: 20141212
  Serious: Yes (Hospitalization, Other)
  Sender: FDA-Public Use
  Company Number: US-US-EMD SERONO, INC.-7166113

PATIENT
  Age: 54 Year
  Sex: Female
  Weight: 81 kg

DRUGS (7)
  1. REBIF [Suspect]
     Indication: MULTIPLE SCLEROSIS
     Route: 058
     Dates: start: 20120707, end: 20140207
  2. REBIF [Suspect]
     Route: 058
     Dates: start: 20140221, end: 20140320
  3. REBIF [Suspect]
     Route: 058
     Dates: start: 20140321, end: 20140503
  4. REBIF [Suspect]
     Route: 058
  5. CALCIUM [Concomitant]
     Indication: OSTEOPOROSIS
     Dates: end: 201303
  6. ATENOLOL [Concomitant]
     Indication: HYPERTENSION
     Dosage: 50MG/100M
  7. ZETIA [Concomitant]
     Indication: BLOOD CHOLESTEROL INCREASED

REACTIONS (15)
  - Myocardial infarction [Recovering/Resolving]
  - Coronary artery occlusion [Recovered/Resolved]
  - Coronary artery disease [Recovered/Resolved]
  - Incision site haemorrhage [Unknown]
  - Blood triglycerides increased [Unknown]
  - Chest pain [Recovered/Resolved]
  - Pneumonia [Not Recovered/Not Resolved]
  - Somnolence [Not Recovered/Not Resolved]
  - Immune system disorder [Unknown]
  - Influenza [Unknown]
  - Contusion [Not Recovered/Not Resolved]
  - Blood pressure increased [Unknown]
  - Multiple sclerosis [Unknown]
  - Hyperhidrosis [Unknown]
  - Fatigue [Not Recovered/Not Resolved]
